FAERS Safety Report 13936377 (Version 1)
Quarter: 2017Q3

REPORT INFORMATION
  Report Type: Spontaneous
  Country: US (occurrence: US)
  Receive Date: 20170905
  Receipt Date: 20170905
  Transmission Date: 20171127
  Serious: Yes (Other)
  Sender: FDA-Public Use
  Company Number: US-HQ SPECIALTY-US-2017INT000312

PATIENT
  Age: 31 Year
  Sex: Male

DRUGS (11)
  1. CISPLATIN. [Suspect]
     Active Substance: CISPLATIN
     Dosage: CYCLE 2
  2. ETOPOSIDE. [Suspect]
     Active Substance: ETOPOSIDE
     Dosage: CYCLE 3
  3. CISPLATIN. [Suspect]
     Active Substance: CISPLATIN
     Dosage: CYCLE 3
  4. CISPLATIN. [Suspect]
     Active Substance: CISPLATIN
     Dosage: CYCLE 4
  5. BLEOMYCIN [Suspect]
     Active Substance: BLEOMYCIN SULFATE
     Dosage: CYCLE 2
  6. ETOPOSIDE. [Suspect]
     Active Substance: ETOPOSIDE
     Dosage: CYCLE 2
  7. ETOPOSIDE. [Suspect]
     Active Substance: ETOPOSIDE
     Dosage: CYCLE 4
  8. BLEOMYCIN [Suspect]
     Active Substance: BLEOMYCIN SULFATE
     Indication: EXTRAGONADAL PRIMARY SEMINOMA (PURE)
     Dosage: CYCLE 1
  9. CISPLATIN. [Suspect]
     Active Substance: CISPLATIN
     Indication: EXTRAGONADAL PRIMARY SEMINOMA (PURE)
     Dosage: CYCLE 1
  10. BLEOMYCIN [Suspect]
     Active Substance: BLEOMYCIN SULFATE
     Dosage: CYCLE 3
  11. ETOPOSIDE. [Suspect]
     Active Substance: ETOPOSIDE
     Indication: EXTRAGONADAL PRIMARY SEMINOMA (PURE)
     Dosage: CYCLE 1

REACTIONS (1)
  - Vena cava thrombosis [Recovered/Resolved]
